FAERS Safety Report 7910764-8 (Version None)
Quarter: 2011Q4

REPORT INFORMATION
  Report Type: 
  Country: None (occurrence: None)
  Receive Date: 20111112
  Receipt Date: 20111102
  Transmission Date: 20120403
  Serious: Yes (Other)
  Sender: FDA-Public Use
  Company Number: US-ASTRAZENECA-2011SE66501

PATIENT
  Age: 61 Year
  Sex: Female

DRUGS (13)
  1. TOPROL-XL [Concomitant]
     Route: 048
     Dates: start: 20110910
  2. LIPITOR [Concomitant]
     Route: 048
     Dates: start: 20110910
  3. PANTOPRAZOLE [Concomitant]
     Route: 048
     Dates: start: 20110915
  4. ASPIRIN [Concomitant]
     Route: 048
     Dates: start: 20110114
  5. IMDUR [Concomitant]
     Route: 048
     Dates: start: 20110910
  6. ESIDRIX/HYDRODIURIL [Concomitant]
     Route: 048
     Dates: start: 20110910
  7. COZAAR [Concomitant]
     Indication: BLOOD PRESSURE
     Route: 048
     Dates: start: 20110911
  8. DESYREL [Concomitant]
     Indication: INSOMNIA
     Route: 048
     Dates: start: 20110624
  9. PLAVIX [Concomitant]
     Route: 048
     Dates: start: 20110910
  10. CHERATUSSIN [Concomitant]
     Indication: COUGH
     Dosage: 10-100 MG/5 ML, EVERY 4 HOURS AS NEEDED
     Route: 048
     Dates: start: 20110412
  11. ZESTRIL [Suspect]
     Route: 048
  12. PROAIR HFA [Concomitant]
     Indication: WHEEZING
     Dosage: 2 PUFFS ORALLY EVERY 4 TO 6 HOURS
     Route: 055
  13. NITROSTAT [Concomitant]
     Dosage: AS NEEDED
     Route: 060
     Dates: start: 20110111

REACTIONS (19)
  - UPPER RESPIRATORY TRACT INFECTION [None]
  - BLOOD PRESSURE ABNORMAL [None]
  - OCCUPATIONAL PHYSICAL PROBLEM [None]
  - MYOCARDIAL INFARCTION [None]
  - WHEEZING [None]
  - STRESS [None]
  - DIVERTICULITIS [None]
  - DRUG HYPERSENSITIVITY [None]
  - DYSPNOEA EXERTIONAL [None]
  - HYPERTENSION [None]
  - HEPATIC STEATOSIS [None]
  - ASTHMA [None]
  - TYPE V HYPERLIPIDAEMIA [None]
  - INSOMNIA [None]
  - MAJOR DEPRESSION [None]
  - OSTEOARTHRITIS [None]
  - TENDONITIS [None]
  - GASTROOESOPHAGEAL REFLUX DISEASE [None]
  - COUGH [None]
